FAERS Safety Report 21342172 (Version 2)
Quarter: 2022Q4

REPORT INFORMATION
  Report Type: Spontaneous
  Country: JP (occurrence: JP)
  Receive Date: 20220916
  Receipt Date: 20221005
  Transmission Date: 20230113
  Serious: Yes (Other)
  Sender: FDA-Public Use
  Company Number: JP-MTPC-MTPC2022-0024840

PATIENT
  Age: 81 Year
  Sex: Female

DRUGS (2)
  1. EDARAVONE [Suspect]
     Active Substance: EDARAVONE
     Indication: Cerebral infarction
     Dosage: 60 MILLIGRAM, QD
     Route: 041
     Dates: start: 20220822, end: 20220904
  2. EDARAVONE [Suspect]
     Active Substance: EDARAVONE
     Dosage: UNK
     Route: 041
     Dates: start: 20220913

REACTIONS (1)
  - Cerebral infarction [Unknown]

NARRATIVE: CASE EVENT DATE: 20220913
